FAERS Safety Report 8481176-6 (Version None)
Quarter: 2012Q3

REPORT INFORMATION
  Report Type: 
  Country: None (occurrence: None)
  Receive Date: 20120702
  Receipt Date: 20120626
  Transmission Date: 20120928
  Serious: Yes (Hospitalization, Other)
  Sender: FDA-Public Use
  Company Number: PHEH2012US007138

PATIENT
  Age: 50 Year
  Sex: Male
  Weight: 82.993 kg

DRUGS (20)
  1. CARBAMAZEPINE [Suspect]
  2. PENTASA [Concomitant]
     Dosage: 250 MG, TID
     Route: 048
     Dates: start: 20111103
  3. HUMIRA [Concomitant]
     Dosage: 0.8 ML, BIW
     Route: 058
     Dates: start: 20111006
  4. ACIDOPHILUS [Concomitant]
     Dosage: 1 DF, DAILY
     Route: 048
  5. PREVACID [Concomitant]
     Dosage: 30 MG, QD
     Route: 048
     Dates: start: 20120430
  6. ASPIRIN [Concomitant]
     Indication: HEADACHE
     Dosage: 1 DF, QW2 AS NEEDED
     Route: 048
  7. VITAMIN B-12 [Concomitant]
     Dosage: MONTHLY INJECTIONS
     Dates: start: 20120315
  8. SODIUM CHLORIDE [Concomitant]
     Dosage: 300 MG, TIW
     Route: 042
     Dates: start: 20110324
  9. BACTRIM DS [Concomitant]
     Dosage: 1 DF, QD
     Route: 048
     Dates: start: 20111103
  10. CYANOCOBALAMIN [Concomitant]
     Dosage: 1000 UG/ML, QMO
     Route: 030
     Dates: start: 20120105
  11. KEPPRA [Concomitant]
     Dosage: 750 MG, BID
     Dates: start: 20120206
  12. DESONIDE [Concomitant]
     Dosage: ONE TIME A DAY AS NEEDED
     Route: 061
     Dates: start: 20110329
  13. HYDROCORTISONE [Concomitant]
     Dosage: 2.5 %, QD AS NEEDED
     Route: 054
     Dates: start: 20120315
  14. IMODIUM [Concomitant]
     Indication: DIARRHOEA
     Dosage: 2 MG, PRN
     Route: 048
  15. SUCROSE [Concomitant]
     Dosage: 300 MG, TIW
     Route: 042
     Dates: start: 20110324
  16. TRIAMCINOLONE ACETONIDE [Concomitant]
     Dosage: UNK UKN, PRN
     Route: 061
     Dates: start: 20120402
  17. ALLEGRA [Concomitant]
     Dosage: 180 MG, QD
     Route: 048
     Dates: start: 20120326
  18. IMITREX [Concomitant]
     Indication: MIGRAINE
     Dosage: 1 TABLET BY MOUTH, MAY REPEAT IN 1 HOUR.
     Dates: start: 20120315
  19. TEGRETOL-XR [Suspect]
     Indication: CONVULSION
     Dosage: 400 MG, BID
     Dates: start: 20120406, end: 20120514
  20. ERGOCALCIFEROL [Concomitant]
     Dosage: 50000 U, QMO
     Route: 048
     Dates: start: 20120105

REACTIONS (6)
  - CROHN'S DISEASE [None]
  - DIARRHOEA [None]
  - CONSTIPATION [None]
  - DRUG INTOLERANCE [None]
  - CONVULSION [None]
  - INTESTINAL OBSTRUCTION [None]
